FAERS Safety Report 9574776 (Version 2)
Quarter: 2013Q4

REPORT INFORMATION
  Report Type: Spontaneous
  Country: JP (occurrence: JP)
  Receive Date: 20131001
  Receipt Date: 20131031
  Transmission Date: 20140711
  Serious: Yes (Other)
  Sender: FDA-Public Use
  Company Number: JP-JNJFOC-20130917383

PATIENT
  Age: 69 Year
  Sex: Female

DRUGS (6)
  1. TRAMCET [Suspect]
     Indication: PAIN
     Dosage: 1 PER DAY
     Route: 048
     Dates: start: 201309, end: 2013
  2. HYPEN [Suspect]
     Indication: PAIN
     Route: 048
     Dates: end: 2013
  3. TRAZENTA [Concomitant]
     Indication: DIABETES MELLITUS
     Dosage: 1 PER DAY
     Route: 048
  4. LIPITOR [Concomitant]
     Indication: HYPERLIPIDAEMIA
     Dosage: 1 PER DAY
     Route: 048
  5. MICARDIS [Concomitant]
     Indication: HYPERTENSION
     Dosage: 1 PER DAY
     Route: 048
  6. FOSAMAC [Concomitant]
     Indication: OSTEOPOROSIS
     Dosage: 1 PER DAY
     Route: 048

REACTIONS (2)
  - Renal failure acute [Recovered/Resolved]
  - Anaemia [Unknown]
